FAERS Safety Report 24366098 (Version 1)
Quarter: 2024Q3

REPORT INFORMATION
  Report Type: Spontaneous
  Country: US (occurrence: None)
  Receive Date: 20240925
  Receipt Date: 20240925
  Transmission Date: 20241016
  Serious: Yes (Hospitalization)
  Sender: Public
  Company Number: None

PATIENT
  Sex: Male

DRUGS (5)
  1. OPSUMIT [Suspect]
     Active Substance: MACITENTAN
  2. REMODULIN [Suspect]
  3. WINREVAIR [Concomitant]
     Indication: Pulmonary arterial hypertension
     Dosage: FREQUENCY : DAILY;?
     Route: 048
     Dates: start: 202102
  4. WINREVAIR [Concomitant]
     Active Substance: SOTATERCEPT-CSRK
  5. REMODULIN MDV [Concomitant]

REACTIONS (7)
  - Micturition urgency [None]
  - Fatigue [None]
  - Diarrhoea [None]
  - Nausea [None]
  - Vomiting [None]
  - Headache [None]
  - Cough [None]
